FAERS Safety Report 20335137 (Version 3)
Quarter: 2022Q1

REPORT INFORMATION
  Report Type: Spontaneous
  Country: DE (occurrence: DE)
  Receive Date: 20220114
  Receipt Date: 20220211
  Transmission Date: 20220424
  Serious: Yes (Other)
  Sender: FDA-Public Use
  Company Number: DE-BAYER-2022A002863

PATIENT
  Sex: Female

DRUGS (1)
  1. MIRENA [Suspect]
     Active Substance: LEVONORGESTREL
     Dosage: 20?G/DAY
     Route: 015
     Dates: start: 20210105, end: 20210106

REACTIONS (7)
  - Device dislocation [None]
  - Post procedural haemorrhage [None]
  - Procedural pain [None]
  - Device expulsion [Recovered/Resolved]
  - Post procedural inflammation [None]
  - Device defective [None]
  - Device use error [None]

NARRATIVE: CASE EVENT DATE: 20210101
